FAERS Safety Report 8934660 (Version 2)
Quarter: 2013Q1

REPORT INFORMATION
  Report Type: Spontaneous
  Country: US (occurrence: US)
  Receive Date: 20121129
  Receipt Date: 20130326
  Transmission Date: 20140127
  Serious: Yes (Death, Other)
  Sender: FDA-Public Use
  Company Number: CHPA2012US024427

PATIENT
  Age: 103 Year
  Sex: Male

DRUGS (2)
  1. MAALOX ANTACID/ANTIGAS MAX LIQ UNKNOWN [Suspect]
     Indication: GASTRIC ULCER
     Dosage: 3 OR 6 TSP, QD
     Route: 048
  2. MAALOX ANTACID/ANTIGAS MAX LIQ UNKNOWN [Suspect]
     Indication: ANTACID THERAPY
     Dosage: UNK UNK, PRN
     Route: 048

REACTIONS (4)
  - Death [Fatal]
  - Hip fracture [Recovered/Resolved]
  - Fall [Recovered/Resolved]
  - Off label use [Unknown]
